FAERS Safety Report 18942820 (Version 1)
Quarter: 2021Q1

REPORT INFORMATION
  Report Type: Spontaneous
  Country: FR (occurrence: FR)
  Receive Date: 20210225
  Receipt Date: 20210225
  Transmission Date: 20210420
  Serious: Yes (Death, Other)
  Sender: FDA-Public Use
  Company Number: FR-BRISTOL-MYERS SQUIBB COMPANY-BMS-2021-015297

PATIENT
  Age: 94 Year
  Sex: Female
  Weight: 66 kg

DRUGS (2)
  1. COUMADIN [Suspect]
     Active Substance: WARFARIN SODIUM
     Indication: PULMONARY EMBOLISM
     Dosage: 3 DOSAGE FORM, QWK
     Route: 048
     Dates: start: 2018, end: 20210204
  2. COLCHIMAX [COLCHICINE;DICYCLOVERINE HYDROCHLORIDE] [Suspect]
     Active Substance: COLCHICINE\DICYCLOMINE HYDROCHLORIDE
     Indication: CHONDROCALCINOSIS
     Dosage: 0.5 MILLIGRAM, QD
     Route: 048
     Dates: start: 20210125, end: 20210204

REACTIONS (4)
  - Vomiting [Fatal]
  - Arrhythmia [Fatal]
  - Acute kidney injury [Fatal]
  - International normalised ratio increased [Fatal]

NARRATIVE: CASE EVENT DATE: 20210129
